FAERS Safety Report 8832731 (Version 1)
Quarter: 2012Q4

REPORT INFORMATION
  Report Type: 
  Country: DE (occurrence: DE)
  Receive Date: 20121010
  Receipt Date: 20121010
  Transmission Date: 20130627
  Serious: Yes (Other)
  Sender: FDA-Public Use
  Company Number: DE-BIOGENIDEC-2012BI039474

PATIENT
  Age: 20 Year
  Sex: Female

DRUGS (1)
  1. AVONEX [Suspect]
     Indication: CLINICALLY ISOLATED SYNDROME
     Route: 030
     Dates: start: 20101001

REACTIONS (1)
  - Benign hydatidiform mole [Unknown]
